FAERS Safety Report 24686427 (Version 1)
Quarter: 2024Q4

REPORT INFORMATION
  Report Type: Spontaneous
  Country: US (occurrence: US)
  Receive Date: 20241202
  Receipt Date: 20241202
  Transmission Date: 20250115
  Serious: No
  Sender: MERCK
  Company Number: US-009507513-2411USA010977

PATIENT
  Age: 56 Year
  Sex: Female

DRUGS (4)
  1. TRUSOPT [Suspect]
     Active Substance: DORZOLAMIDE HYDROCHLORIDE
     Indication: Open angle glaucoma
     Dosage: 3 ROUNDS
  2. TIMOLOL [Concomitant]
     Active Substance: TIMOLOL\TIMOLOL MALEATE
     Dosage: 3 ROUNDS
  3. BRIMONIDINE [Concomitant]
     Active Substance: BRIMONIDINE TARTRATE
     Dosage: 3 ROUNDS
  4. ACETAZOLAMIDE [Concomitant]
     Active Substance: ACETAZOLAMIDE
     Dosage: 500 MILLIGRAM, 3 ROUNDS
     Route: 042

REACTIONS (1)
  - Therapy partial responder [Unknown]
